FAERS Safety Report 8941881 (Version 3)
Quarter: 2013Q1

REPORT INFORMATION
  Report Type: Spontaneous
  Country: US (occurrence: US)
  Receive Date: 20121130
  Receipt Date: 20130222
  Transmission Date: 20140127
  Serious: No
  Sender: FDA-Public Use
  Company Number: US-VERTEX PHARMACEUTICAL INC.-2012-025277

PATIENT
  Age: 55 None
  Sex: Female
  Weight: 59 kg

DRUGS (4)
  1. INCIVEK [Suspect]
     Indication: HEPATITIS C
     Dosage: 750 MG, TID
     Route: 048
     Dates: start: 20121111, end: 2013
  2. RIBAVIRIN [Suspect]
     Indication: HEPATITIS C
     Dosage: 400MG AM, 600MG PM
     Dates: start: 20121111
  3. RIBAVIRIN [Suspect]
     Dosage: DOSE REDUCED
  4. PEGASYS [Suspect]
     Indication: HEPATITIS C
     Dosage: 180 ?G, WEEKLY
     Dates: start: 20121111

REACTIONS (12)
  - Inappropriate schedule of drug administration [Recovered/Resolved]
  - Depression [Unknown]
  - Memory impairment [Not Recovered/Not Resolved]
  - Skin haemorrhage [Unknown]
  - Headache [Not Recovered/Not Resolved]
  - Musculoskeletal pain [Not Recovered/Not Resolved]
  - Arthralgia [Not Recovered/Not Resolved]
  - Dry skin [Unknown]
  - Fatigue [Unknown]
  - Rash [Recovered/Resolved]
  - Anaemia [Unknown]
  - Nausea [Not Recovered/Not Resolved]
